FAERS Safety Report 6660781-3 (Version None)
Quarter: 2010Q1

REPORT INFORMATION
  Report Type: 
  Country: None (occurrence: None)
  Receive Date: 20100331
  Receipt Date: 20100323
  Transmission Date: 20100710
  Serious: Yes (Death, Hospitalization)
  Sender: FDA-Public Use
  Company Number: JP-ROCHE-676371

PATIENT
  Sex: Female
  Weight: 48 kg

DRUGS (17)
  1. TOCILIZUMAB [Suspect]
     Indication: CASTLEMAN'S DISEASE
     Route: 041
     Dates: start: 20081118, end: 20090127
  2. TOCILIZUMAB [Suspect]
     Route: 041
     Dates: start: 20090303, end: 20090324
  3. TOCILIZUMAB [Suspect]
     Route: 041
     Dates: start: 20090514, end: 20090804
  4. TOCILIZUMAB [Suspect]
     Route: 041
     Dates: start: 20090901, end: 20090924
  5. TOCILIZUMAB [Suspect]
     Route: 041
     Dates: start: 20091015, end: 20091015
  6. TOCILIZUMAB [Suspect]
     Route: 041
     Dates: start: 20091112, end: 20091224
  7. PREDNISOLONE [Suspect]
     Indication: CASTLEMAN'S DISEASE
     Route: 048
     Dates: start: 20090211, end: 20090309
  8. PREDNISOLONE [Suspect]
     Route: 048
     Dates: start: 20090310, end: 20090316
  9. PREDNISOLONE [Suspect]
     Route: 048
     Dates: start: 20090317, end: 20090101
  10. PREDNISOLONE [Suspect]
     Route: 048
     Dates: start: 20090402, end: 20090701
  11. PREDNISOLONE [Suspect]
     Indication: CASTLEMAN'S DISEASE
     Route: 048
     Dates: start: 20090707, end: 20090803
  12. PREDNISOLONE [Suspect]
     Route: 048
     Dates: start: 20090804, end: 20091224
  13. LASIX [Concomitant]
     Dosage: FORM:PERORAL AGENT
     Route: 048
     Dates: start: 20080916
  14. LASIX [Concomitant]
     Dosage: FORM:PERORAL AGENT
     Route: 048
     Dates: start: 20081221, end: 20091224
  15. SELBEX [Concomitant]
     Dosage: DOSE FORM: PERORAL AGENT
     Route: 048
     Dates: start: 20080923, end: 20091224
  16. FAMOTIDINE [Concomitant]
     Route: 048
     Dates: start: 20090211, end: 20091224
  17. MAGMITT [Concomitant]
     Route: 048
     Dates: start: 20090402, end: 20091224

REACTIONS (3)
  - CARDIO-RESPIRATORY ARREST [None]
  - DEATH [None]
  - HERPES ZOSTER [None]
